FAERS Safety Report 23100418 (Version 2)
Quarter: 2023Q4

REPORT INFORMATION
  Report Type: Spontaneous
  Country: US (occurrence: US)
  Receive Date: 20231024
  Receipt Date: 20231205
  Transmission Date: 20240110
  Serious: Yes (Disabling, Other)
  Sender: FDA-Public Use
  Company Number: US-BRISTOL-MYERS SQUIBB COMPANY-2023-149489

PATIENT
  Age: 80 Year
  Sex: Female
  Weight: 88 kg

DRUGS (2)
  1. REVLIMID [Suspect]
     Active Substance: LENALIDOMIDE
     Indication: Plasma cell myeloma
     Dosage: FREQUENCY: DAILY ON DAYS 1-21 OF 28 DAY CYCLE
     Route: 048
     Dates: start: 20230510
  2. REVLIMID [Suspect]
     Active Substance: LENALIDOMIDE
     Dosage: D1-21
     Route: 048
     Dates: start: 20230905, end: 20231011

REACTIONS (3)
  - Deep vein thrombosis [Recovering/Resolving]
  - Asthenia [Unknown]
  - Fall [Unknown]

NARRATIVE: CASE EVENT DATE: 20231001
